FAERS Safety Report 12580174 (Version 2)
Quarter: 2016Q3

REPORT INFORMATION
  Report Type: Spontaneous
  Country: US (occurrence: US)
  Receive Date: 20160721
  Receipt Date: 20160802
  Transmission Date: 20161109
  Serious: Yes (Hospitalization)
  Sender: FDA-Public Use
  Company Number: US-ASTRAZENECA-2016SE77522

PATIENT
  Age: 819 Month
  Sex: Male
  Weight: 104.3 kg

DRUGS (4)
  1. TUDORZA PRESSAIR [Suspect]
     Active Substance: ACLIDINIUM BROMIDE
     Indication: CHRONIC OBSTRUCTIVE PULMONARY DISEASE
     Route: 055
     Dates: start: 20160304, end: 201607
  2. BUMETANIDE. [Concomitant]
     Active Substance: BUMETANIDE
  3. WARFARIN [Concomitant]
     Active Substance: WARFARIN
  4. TUDORZA PRESSAIR [Suspect]
     Active Substance: ACLIDINIUM BROMIDE
     Indication: CHRONIC OBSTRUCTIVE PULMONARY DISEASE
     Route: 055
     Dates: end: 201601

REACTIONS (7)
  - Infection [Unknown]
  - Gastrointestinal necrosis [Unknown]
  - Visual acuity reduced [Not Recovered/Not Resolved]
  - Thrombosis [Unknown]
  - Hypoacusis [Not Recovered/Not Resolved]
  - Wrong device dispensed [Unknown]
  - Drug dose omission [Recovered/Resolved]

NARRATIVE: CASE EVENT DATE: 201601
